FAERS Safety Report 7450441-3 (Version None)
Quarter: 2011Q2

REPORT INFORMATION
  Report Type: 
  Country: None (occurrence: None)
  Receive Date: 20110502
  Receipt Date: 20110426
  Transmission Date: 20111010
  Serious: Yes (Other)
  Sender: FDA-Public Use
  Company Number: JP-ASTRAZENECA-2011SE14831

PATIENT
  Age: 81 Year
  Sex: Male

DRUGS (2)
  1. SULBACILLIN [Concomitant]
     Route: 042
  2. MEROPENEM [Suspect]
     Indication: PNEUMONIA BACTERIAL
     Route: 042
     Dates: start: 20110113, end: 20110114

REACTIONS (1)
  - DEPRESSED LEVEL OF CONSCIOUSNESS [None]
